FAERS Safety Report 24966123 (Version 1)
Quarter: 2025Q1

REPORT INFORMATION
  Report Type: Spontaneous
  Country: US (occurrence: US)
  Receive Date: 20250213
  Receipt Date: 20250213
  Transmission Date: 20250409
  Serious: No
  Sender: MYLAN
  Company Number: US-MYLANLABS-2025M1004897

PATIENT
  Age: 56 Year
  Sex: Female

DRUGS (23)
  1. WIXELA INHUB [Suspect]
     Active Substance: FLUTICASONE PROPIONATE\SALMETEROL XINAFOATE
     Indication: Product used for unknown indication
     Dosage: 250/50 MICROGRAM, BID (ONE PUFF EVERY 12 HOURS)
     Route: 055
     Dates: start: 20240904
  2. ALBUTEROL SULFATE [Concomitant]
     Active Substance: ALBUTEROL SULFATE
     Dosage: UNK, BID (EVERY 12 HOURS)
     Route: 055
     Dates: start: 20240716
  3. NORVASC [Concomitant]
     Active Substance: AMLODIPINE BESYLATE
     Dosage: 5 MILLIGRAM, QD (TAKE 2 TABLETS BY MOUTH DAILY)
     Route: 048
     Dates: start: 20240827
  4. MEPRON [Concomitant]
     Active Substance: ATOVAQUONE
     Dosage: 10 MILLILITER, QD (TAKE 10 ML BY MOUTH DAILY)
     Route: 048
     Dates: start: 20240812
  5. VITAMIN D3 [Concomitant]
     Active Substance: CHOLECALCIFEROL
     Dosage: 125 MICROGRAM, QD (TAKE 1 TABLET BY MOUTH DAILY)
     Route: 048
     Dates: start: 20231113
  6. CYCLOSPORINE [Concomitant]
     Active Substance: CYCLOSPORINE
     Dosage: 75 MILLIGRAM, BID (2 TIMES A DAY)
     Route: 048
     Dates: start: 20240108
  7. DOMPERIDONE [Concomitant]
     Active Substance: DOMPERIDONE
     Dosage: 10 MILLIGRAM, QID (TAKE 10 MG BY MOUTH 4 TIMES DAILY)
     Route: 048
     Dates: start: 20240227
  8. ZORTRESS [Concomitant]
     Active Substance: EVEROLIMUS
     Dosage: 1.5 MILLIGRAM, BID (TOTAL DOSE: AM 1.5MG / PM 1.5MG. TAKE 12 HOURS APART)
     Route: 048
     Dates: start: 20240821
  9. PEPCID [Concomitant]
     Active Substance: FAMOTIDINE
     Dosage: 20 MILLIGRAM, QD (TAKE 1 TABLET BY MOUTH EVERY DAY)
     Route: 048
     Dates: start: 20240212
  10. PREVACID SOLUTAB [Concomitant]
     Active Substance: LANSOPRAZOLE
     Dosage: 30 MILLIGRAM, BID (TAKE 1 TABLET BY MOUTH TWICE A DAY)
     Route: 048
     Dates: start: 20240819
  11. LEVAQUIN [Concomitant]
     Active Substance: LEVOFLOXACIN
     Dosage: 750 MILLIGRAM, QD (1 TABLET BY MOUTH DAILY)
     Route: 048
     Dates: start: 20240905, end: 20241204
  12. LEVOTHYROXINE [Concomitant]
     Active Substance: LEVOTHYROXINE
     Dosage: 50 MICROGRAM, AM (TAKE 50 MICROGRAMS BY MOUTH DAILY ON AN EMPTY STOMACH)
     Route: 048
  13. SINGULAIR [Concomitant]
     Active Substance: MONTELUKAST SODIUM
     Dosage: 10 MILLIGRAM, HS (TAKE 1 TABLET BY MOUTH EVERY DAY AT BEDTIME)
     Route: 048
     Dates: start: 20240206
  14. CELLCEPT [Concomitant]
     Active Substance: MYCOPHENOLATE MOFETIL
     Dosage: 250 MILLIGRAM, BID (TAKE 250MG BY MOUTH TWICE DAILY)
     Route: 048
     Dates: start: 20240313
  15. ZOFRAN [Concomitant]
     Active Substance: ONDANSETRON HYDROCHLORIDE
     Indication: Nausea
     Route: 048
     Dates: start: 20230106
  16. ZOFRAN [Concomitant]
     Active Substance: ONDANSETRON HYDROCHLORIDE
     Indication: Vomiting
  17. VEETIDS [Concomitant]
     Active Substance: PENICILLIN V POTASSIUM
     Dosage: 500 MILLIGRAM, BID (TAKE 1 TABLET BY MOUTH EVERY 12 HOURS)
     Route: 048
     Dates: start: 20240212
  18. PRAVACHOL [Concomitant]
     Active Substance: PRAVASTATIN SODIUM
     Dosage: 10 MILLIGRAM, HS (TAKE 1 TABLET BY MOUTH EVERY DAY AT BEDTIME)
     Route: 048
     Dates: start: 20231027
  19. DELTASONE [Concomitant]
     Active Substance: PREDNISONE
     Dosage: 5 MILLIGRAM, QD (TAKE 1 TABLET BY MOUTH EVERY DAY)
     Route: 048
     Dates: start: 20240327
  20. ULTOMIRIS [Concomitant]
     Active Substance: RAVULIZUMAB-CWVZ
     Dosage: 10 MILLIGRAM PER MILLILITRE, 6XW (EVERY 6 WEEKS)
     Route: 042
  21. BACTRIM DS [Concomitant]
     Active Substance: SULFAMETHOXAZOLE\TRIMETHOPRIM
     Dosage: UNK, BID (TAKE 1 TABLET BY MOUTH 2 TIMES A DAY)
     Route: 048
     Dates: start: 20240905, end: 20241204
  22. TOBI [Concomitant]
     Active Substance: TOBRAMYCIN
     Dosage: 5 MILLILITER, BID (TAKE 5 ML BY NEBULIZATION EVERY 12 HOURS)
     Route: 055
     Dates: start: 20240411
  23. VALCYTE [Concomitant]
     Active Substance: VALGANCICLOVIR HYDROCHLORIDE
     Dosage: 450 MILLIGRAM, QD (TAKE 1 TABLET BY MOUTH DAILY)
     Route: 048
     Dates: start: 20240425

REACTIONS (2)
  - Hot flush [Unknown]
  - Night sweats [Unknown]
